FAERS Safety Report 5065306-4 (Version None)
Quarter: 2006Q3

REPORT INFORMATION
  Report Type: 
  Country: None (occurrence: None)
  Receive Date: 20060731
  Receipt Date: 20060725
  Transmission Date: 20061208
  Serious: Yes (Life-Threatening, Hospitalization)
  Sender: FDA-Public Use
  Company Number: 2006AP03467

PATIENT
  Age: 66 Year
  Sex: Male

DRUGS (6)
  1. OMEPRAL [Suspect]
     Indication: GASTRIC ULCER
     Route: 048
     Dates: start: 20060601, end: 20060629
  2. OMEPRAL [Suspect]
     Route: 048
     Dates: start: 20060630, end: 20060702
  3. MUCOSTA [Suspect]
     Route: 048
     Dates: start: 20060601, end: 20060702
  4. SULCAIN [Suspect]
     Route: 048
     Dates: start: 20060601, end: 20060702
  5. SOLCOSERYL [Concomitant]
     Route: 041
     Dates: start: 20060602, end: 20060610
  6. SOLCOSERYL [Concomitant]
     Route: 041
     Dates: start: 20060630

REACTIONS (5)
  - BRADYCARDIA [None]
  - HEPATIC FUNCTION ABNORMAL [None]
  - HYPOTENSION [None]
  - PLATELET COUNT DECREASED [None]
  - WHITE BLOOD CELL COUNT DECREASED [None]
